FAERS Safety Report 7825205-9 (Version None)
Quarter: 2011Q4

REPORT INFORMATION
  Report Type: 
  Country: None (occurrence: None)
  Receive Date: 20111019
  Receipt Date: 20111017
  Transmission Date: 20120403
  Serious: Yes (Death, Other)
  Sender: FDA-Public Use
  Company Number: CN-PFIZER INC-2011247366

PATIENT
  Age: 75 Year
  Sex: Male

DRUGS (1)
  1. SUTENT [Suspect]
     Indication: RENAL CELL CARCINOMA
     Dosage: 3 TABLETS OR 4 TABLETS DAILY
     Route: 048

REACTIONS (2)
  - HYDROTHORAX [None]
  - GASTROINTESTINAL HAEMORRHAGE [None]
